FAERS Safety Report 23471172 (Version 1)
Quarter: 2024Q1

REPORT INFORMATION
  Report Type: Spontaneous
  Country: None (occurrence: US)
  Receive Date: 20240202
  Receipt Date: 20240202
  Transmission Date: 20240409
  Serious: Yes (Other)
  Sender: FDA-Public Use
  Company Number: US-Ascend Therapeutics US, LLC-2152535

PATIENT
  Sex: Female

DRUGS (3)
  1. ANDROGEL 1% [Suspect]
     Active Substance: TESTOSTERONE
     Indication: Gender reassignment therapy
     Route: 065
     Dates: start: 2015
  2. TESTOSTERONE [Suspect]
     Active Substance: TESTOSTERONE
     Route: 065
     Dates: start: 2015
  3. FINASTERIDE [Concomitant]
     Active Substance: FINASTERIDE
     Route: 065
     Dates: start: 2015

REACTIONS (2)
  - Endometrial cancer [Unknown]
  - Off label use [Unknown]
